FAERS Safety Report 5090384-6 (Version None)
Quarter: 2006Q3

REPORT INFORMATION
  Report Type: 
  Country: None (occurrence: None)
  Receive Date: 20060828
  Receipt Date: 20060810
  Transmission Date: 20061208
  Serious: Yes (Other)
  Sender: FDA-Public Use
  Company Number: FR-BRISTOL-MYERS SQUIBB COMPANY-13481841

PATIENT
  Age: 58 Year
  Sex: Male

DRUGS (3)
  1. ERBITUX [Suspect]
     Indication: SQUAMOUS CELL CARCINOMA
     Route: 042
     Dates: start: 20060630, end: 20060728
  2. RADIATION THERAPY [Suspect]
     Indication: SQUAMOUS CELL CARCINOMA
     Dates: start: 20060630, end: 20060803
  3. TOLEXINE [Suspect]
     Indication: SKIN LESION
     Dates: start: 20060710

REACTIONS (2)
  - RADIATION SKIN INJURY [None]
  - WOUND INFECTION STAPHYLOCOCCAL [None]
